FAERS Safety Report 10814958 (Version 1)
Quarter: 2015Q1

REPORT INFORMATION
  Report Type: Report from Study
  Country: US (occurrence: US)
  Receive Date: 20150218
  Receipt Date: 20150218
  Transmission Date: 20150721
  Serious: Yes (Other)
  Sender: FDA-Public Use
  Company Number: US-ABBVIE-14K-163-1279297-00

PATIENT
  Age: 62 Year
  Sex: Male

DRUGS (3)
  1. BYSTOLIC [Concomitant]
     Active Substance: NEBIVOLOL HYDROCHLORIDE
     Indication: HYPERTENSION
  2. HUMIRA [Suspect]
     Active Substance: ADALIMUMAB
     Indication: CROHN^S DISEASE
     Dates: start: 201301, end: 2014
  3. HUMIRA [Suspect]
     Active Substance: ADALIMUMAB
     Dates: start: 20140818

REACTIONS (3)
  - Prostatic specific antigen increased [Not Recovered/Not Resolved]
  - Arthroscopic surgery [Unknown]
  - Drug effect decreased [Unknown]

NARRATIVE: CASE EVENT DATE: 201301
